FAERS Safety Report 17983909 (Version 1)
Quarter: 2020Q3

REPORT INFORMATION
  Report Type: Spontaneous
  Country: JP (occurrence: JP)
  Receive Date: 20200706
  Receipt Date: 20200706
  Transmission Date: 20201103
  Serious: Yes (Other)
  Sender: FDA-Public Use
  Company Number: JP-INGENUS PHARMACEUTICALS, LLC-2020INF000107

PATIENT
  Age: 5 Year
  Sex: Male

DRUGS (9)
  1. CISPLATIN. [Concomitant]
     Active Substance: CISPLATIN
     Indication: NEUROBLASTOMA
     Dosage: 20 MILLIGRAM/SQ. METER, QD, ON DAYS 1?5
     Route: 065
  2. GRANULOCYTE COLONY?STIMULATING FACTOR [Concomitant]
     Active Substance: GRANULOCYTE COLONY-STIMULATING FACTOR NOS
     Indication: COLONY STIMULATING FACTOR THERAPY
     Dosage: UNK
     Route: 042
  3. CARBOPLATIN. [Suspect]
     Active Substance: CARBOPLATIN
     Indication: NEUROBLASTOMA
     Dosage: 1600 MILLIGRAM/SQ. METER
     Route: 065
  4. DALTEPARIN [Concomitant]
     Active Substance: DALTEPARIN
     Indication: PROPHYLAXIS
     Dosage: 75 INTERNATIONAL UNITS/KG, QD
     Route: 042
  5. MELPHALAN. [Suspect]
     Active Substance: MELPHALAN
     Indication: NEUROBLASTOMA
     Dosage: 200 MILLIGRAM/SQ. METER
     Route: 065
  6. ETOPOSIDE. [Suspect]
     Active Substance: ETOPOSIDE
     Indication: NEUROBLASTOMA
     Dosage: 800 MILLIGRAM/SQ. METER
     Route: 065
  7. CYCLOPHOSPHAMIDE. [Concomitant]
     Active Substance: CYCLOPHOSPHAMIDE
     Indication: NEUROBLASTOMA
     Dosage: 1200 MILLIGRAM/SQ. METER, QD, ON DAY 1 OR DAYS 1?2
     Route: 065
  8. PIRARUBICIN [Concomitant]
     Active Substance: PIRARUBICIN
     Indication: NEUROBLASTOMA
     Dosage: 40 MILLIGRAM/SQ. METER, QD, ON DAY 3
     Route: 065
  9. VINCRISTINE [Concomitant]
     Active Substance: VINCRISTINE
     Indication: NEUROBLASTOMA
     Dosage: 1.5 MILLIGRAM/SQ. METER, QD, ON DAY 1
     Route: 065

REACTIONS (2)
  - Myelosuppression [Recovered/Resolved]
  - Gastrointestinal injury [Recovered/Resolved]
